FAERS Safety Report 10748499 (Version 1)
Quarter: 2015Q1

REPORT INFORMATION
  Report Type: Spontaneous
  Country: CO (occurrence: CO)
  Receive Date: 20150129
  Receipt Date: 20150129
  Transmission Date: 20150721
  Serious: Yes (Life-Threatening)
  Sender: FDA-Public Use
  Company Number: CO-GLAXOSMITHKLINE-CO2015GSK008725

PATIENT
  Age: 32 Year
  Sex: Male
  Weight: 76 kg

DRUGS (4)
  1. RITONAVIR. [Concomitant]
     Active Substance: RITONAVIR
     Indication: HIV TEST POSITIVE
     Dosage: 100 MG, QD
     Route: 048
     Dates: start: 20121205
  2. TELZIR [Suspect]
     Active Substance: FOSAMPRENAVIR CALCIUM
     Indication: HIV TEST POSITIVE
     Dosage: 1400 MG, QD
     Route: 048
     Dates: start: 20121205, end: 20141211
  3. KIVEXA [Suspect]
     Active Substance: ABACAVIR SULFATE\LAMIVUDINE
     Indication: HIV TEST POSITIVE
     Dosage: 600/300 MG
     Route: 048
     Dates: start: 20121205
  4. GEMFIBROZIL. [Concomitant]
     Active Substance: GEMFIBROZIL
     Dosage: 600 MG, QD
     Route: 048
     Dates: start: 20121205

REACTIONS (2)
  - Hypertriglyceridaemia [Unknown]
  - Dyslipidaemia [Unknown]

NARRATIVE: CASE EVENT DATE: 20140401
